FAERS Safety Report 9106628 (Version 5)
Quarter: 2014Q3

REPORT INFORMATION
  Report Type: Report from Study
  Country: JP (occurrence: JP)
  Receive Date: 20130221
  Receipt Date: 20140810
  Transmission Date: 20150326
  Serious: Yes (Death)
  Sender: FDA-Public Use
  Company Number: PHHY2013JP017114

PATIENT
  Age: 40 Year
  Sex: Female

DRUGS (4)
  1. HALCION [Concomitant]
     Active Substance: TRIAZOLAM
     Route: 048
  2. LENDORMIN [Concomitant]
     Active Substance: BROTIZOLAM
     Route: 048
  3. GILENYA [Suspect]
     Active Substance: FINGOLIMOD HYDROCHLORIDE
     Indication: MULTIPLE SCLEROSIS
     Dosage: 0.5 MG, QD
     Route: 048
     Dates: start: 20120726, end: 20130204
  4. ADRENERGIC DRUGS [Concomitant]
     Dates: start: 200412

REACTIONS (1)
  - Completed suicide [Fatal]

NARRATIVE: CASE EVENT DATE: 20130210
